FAERS Safety Report 10932555 (Version 2)
Quarter: 2015Q2

REPORT INFORMATION
  Report Type: Spontaneous
  Country: US (occurrence: US)
  Receive Date: 20150320
  Receipt Date: 20150420
  Transmission Date: 20150821
  Serious: Yes (Death)
  Sender: FDA-Public Use
  Company Number: US-UCBSA-2015008047

PATIENT
  Age: 88 Year
  Sex: Male

DRUGS (1)
  1. KEPPRA XR [Suspect]
     Active Substance: LEVETIRACETAM
     Indication: SEIZURE
     Dosage: 500 MG 4 TABLETS DAILY
     Dates: start: 2010, end: 201502

REACTIONS (1)
  - Death [Fatal]

NARRATIVE: CASE EVENT DATE: 20150225
